FAERS Safety Report 8838235 (Version 2)
Quarter: 2015Q2

REPORT INFORMATION
  Report Type: Report from Study
  Country: US (occurrence: US)
  Receive Date: 20121012
  Receipt Date: 20150629
  Transmission Date: 20150821
  Serious: Yes (Hospitalization)
  Sender: FDA-Public Use
  Company Number: US-ROCHE-1140392

PATIENT
  Sex: Male
  Weight: 35.8 kg

DRUGS (14)
  1. NUTROPIN AQ [Suspect]
     Active Substance: SOMATROPIN
     Indication: HYPOPITUITARISM
     Route: 058
  2. SYNTHROID [Concomitant]
     Active Substance: LEVOTHYROXINE SODIUM
  3. NYSTATIN. [Concomitant]
     Active Substance: NYSTATIN
     Route: 048
  4. NUTROPIN AQ [Suspect]
     Active Substance: SOMATROPIN
     Route: 058
  5. CEFOTAXIME [Concomitant]
     Active Substance: CEFOTAXIME\CEFOTAXIME SODIUM
  6. CORTEF [Concomitant]
     Active Substance: HYDROCORTISONE
  7. NUTROPIN AQ [Suspect]
     Active Substance: SOMATROPIN
     Route: 058
  8. AMPICILLIN [Concomitant]
     Active Substance: AMPICILLIN
  9. TYLENOL [Concomitant]
     Active Substance: ACETAMINOPHEN
  10. NUTROPIN AQ [Suspect]
     Active Substance: SOMATROPIN
     Route: 058
  11. CEFZIL [Concomitant]
     Active Substance: CEFPROZIL
     Dosage: IN 5 ML
     Route: 048
  12. ZANTAC [Concomitant]
     Active Substance: RANITIDINE HYDROCHLORIDE
  13. PREDNISOLONE. [Concomitant]
     Active Substance: PREDNISOLONE
  14. REGLAN [Concomitant]
     Active Substance: METOCLOPRAMIDE HYDROCHLORIDE

REACTIONS (9)
  - Hypophagia [Unknown]
  - Headache [Unknown]
  - Pollakiuria [Recovering/Resolving]
  - Mood altered [Unknown]
  - Urine odour abnormal [Unknown]
  - Bacterial infection [Unknown]
  - Pyrexia [Unknown]
  - Pyelonephritis [Unknown]
  - Vision blurred [Unknown]
